FAERS Safety Report 4542416-9 (Version None)
Quarter: 2004Q4

REPORT INFORMATION
  Report Type: 
  Country: None (occurrence: None)
  Receive Date: 20041230
  Receipt Date: 20041228
  Transmission Date: 20050328
  Serious: Yes (Hospitalization)
  Sender: FDA-Public Use
  Company Number: US-ABBOTT-04P-163-0284836-00

PATIENT
  Age: 29 Year
  Sex: Male
  Weight: 73 kg

DRUGS (8)
  1. WARFARIN SODIUM [Suspect]
     Indication: MYOCARDIAL INFARCTION
     Route: 048
     Dates: start: 19920801
  2. WARFARIN SODIUM [Suspect]
     Indication: TRANSIENT ISCHAEMIC ATTACK
     Route: 048
     Dates: end: 19960601
  3. WARFARIN SODIUM [Suspect]
     Route: 048
     Dates: start: 19970401, end: 19970603
  4. WARFARIN SODIUM [Suspect]
     Route: 048
     Dates: start: 19970603, end: 19970624
  5. WARFARIN SODIUM [Suspect]
     Route: 048
     Dates: start: 19970624, end: 19970717
  6. WARFARIN SODIUM [Suspect]
     Dosage: 25MG-MONDAY, TUESDAY, THURSDAY, FRIDAY, SATURDAY 30MG-WEDNESDAY, SUNDAY
     Route: 048
     Dates: start: 19970717, end: 19970908
  7. SMOKELESS TOBACCO [Interacting]
     Indication: DRUG USE FOR UNKNOWN INDICATION
     Dosage: CHEW
     Dates: start: 19750101, end: 19970101
  8. DIPHENHYDRAMINE [Concomitant]
     Indication: SEASONAL ALLERGY
     Route: 048

REACTIONS (6)
  - DRUG INEFFECTIVE [None]
  - DRUG INTERACTION [None]
  - INTERNATIONAL NORMALISED RATIO DECREASED [None]
  - INTERNATIONAL NORMALISED RATIO INCREASED [None]
  - ISCHAEMIC STROKE [None]
  - MYOCARDIAL INFARCTION [None]
